FAERS Safety Report 11106765 (Version 1)
Quarter: 2015Q2

REPORT INFORMATION
  Report Type: Spontaneous
  Country: US (occurrence: None)
  Receive Date: 20150511
  Receipt Date: 20150511
  Transmission Date: 20150821
  Serious: Yes (Hospitalization, Disabling, Other)
  Sender: FDA-Public Use
  Company Number: None

PATIENT
  Age: 38 Year
  Sex: Female
  Weight: 82.1 kg

DRUGS (15)
  1. ROBINUL [Concomitant]
     Active Substance: GLYCOPYRROLATE
  2. DEXILANT [Concomitant]
     Active Substance: DEXLANSOPRAZOLE
  3. TRAZODONE [Concomitant]
     Active Substance: TRAZODONE HYDROCHLORIDE
  4. CYMALTA [Concomitant]
  5. DILAUDID [Concomitant]
     Active Substance: HYDROMORPHONE HYDROCHLORIDE
  6. TYLENOL [Concomitant]
     Active Substance: ACETAMINOPHEN
  7. GABAPENTIN 400MG [Suspect]
     Active Substance: GABAPENTIN
     Indication: MIGRAINE
     Dosage: 3 PILLS
     Route: 048
     Dates: start: 20150111, end: 20150204
  8. TRILEPTAL [Concomitant]
     Active Substance: OXCARBAZEPINE
  9. BYSTOLIC [Concomitant]
     Active Substance: NEBIVOLOL HYDROCHLORIDE
  10. MIRALAX [Concomitant]
     Active Substance: POLYETHYLENE GLYCOL 3350
  11. LIPITOR [Concomitant]
     Active Substance: ATORVASTATIN CALCIUM
  12. KLONOPIN [Concomitant]
     Active Substance: CLONAZEPAM
  13. FLEXERIL [Concomitant]
     Active Substance: CYCLOBENZAPRINE HYDROCHLORIDE
  14. GABAPENTIN 400MG [Suspect]
     Active Substance: GABAPENTIN
     Indication: DEPRESSION
     Dosage: 3 PILLS
     Route: 048
     Dates: start: 20150111, end: 20150204
  15. TOPAMAX [Concomitant]
     Active Substance: TOPIRAMATE

REACTIONS (13)
  - Incontinence [None]
  - Fear [None]
  - Hypoaesthesia [None]
  - Muscular weakness [None]
  - Gait disturbance [None]
  - Crying [None]
  - Migraine [None]
  - Tremor [None]
  - Paraesthesia [None]
  - Intervertebral disc protrusion [None]
  - Sensory loss [None]
  - Disease recurrence [None]
  - Therapy change [None]

NARRATIVE: CASE EVENT DATE: 20150111
